FAERS Safety Report 6453843-7 (Version None)
Quarter: 2009Q4

REPORT INFORMATION
  Report Type: 
  Country: None (occurrence: None)
  Receive Date: 20091124
  Receipt Date: 20091116
  Transmission Date: 20100525
  Serious: Yes (Other)
  Sender: FDA-Public Use
  Company Number: BR-JNJFOC-20091105909

PATIENT
  Sex: Male
  Weight: 89 kg

DRUGS (3)
  1. REMICADE [Suspect]
     Dosage: ^4 AND A HALF DOSES EVERY 8 WEEKS^
     Route: 042
  2. REMICADE [Suspect]
     Dosage: SECOND DOSE
     Route: 042
  3. REMICADE [Suspect]
     Indication: CROHN'S DISEASE
     Dosage: ^4 AND A HALF DOSES EVERY 8 WEEKS^
     Route: 042

REACTIONS (4)
  - ARTHRALGIA [None]
  - BACK PAIN [None]
  - MUSCULAR WEAKNESS [None]
  - PAIN IN EXTREMITY [None]
